FAERS Safety Report 6443634-5 (Version None)
Quarter: 2009Q4

REPORT INFORMATION
  Report Type: 
  Country: None (occurrence: None)
  Receive Date: 20091113
  Receipt Date: 20091104
  Transmission Date: 20100525
  Serious: Yes (Death, Hospitalization)
  Sender: FDA-Public Use
  Company Number: 2009AC000205

PATIENT
  Age: 73 Year
  Sex: Female

DRUGS (1)
  1. DIGOXIN [Suspect]
     Dosage: 0.125 MG; PO
     Route: 048
     Dates: start: 20060101, end: 20070801

REACTIONS (9)
  - ASTHENIA [None]
  - DIARRHOEA [None]
  - ECONOMIC PROBLEM [None]
  - MALIGNANT MELANOMA [None]
  - MENTAL STATUS CHANGES [None]
  - MULTIPLE INJURIES [None]
  - NAUSEA [None]
  - SURGERY [None]
  - UNEVALUABLE EVENT [None]
